FAERS Safety Report 10179800 (Version 1)
Quarter: 2014Q2

REPORT INFORMATION
  Report Type: Spontaneous
  Country: US (occurrence: US)
  Receive Date: 20140519
  Receipt Date: 20140519
  Transmission Date: 20141212
  Serious: No
  Sender: FDA-Public Use
  Company Number: US-AMGEN INC.-USASP2013070637

PATIENT
  Sex: Female

DRUGS (12)
  1. PROLIA [Suspect]
     Indication: OSTEOPOROSIS
     Dosage: UNK
     Route: 065
     Dates: start: 2010
  2. XANAX [Concomitant]
  3. DEXILANT [Concomitant]
  4. CALCIUM [Concomitant]
  5. FISH OIL OMEGA 3 [Concomitant]
  6. VITAMIN C                          /00008001/ [Concomitant]
  7. VITAMIN D                          /00107901/ [Concomitant]
  8. VITAMIN B12                        /00056201/ [Concomitant]
  9. CRANBERRY                          /01512301/ [Concomitant]
  10. OLIVE LEAVES EXTRACT [Concomitant]
  11. CORTISONE [Concomitant]
  12. ANTIHYPERTENSIVES [Concomitant]

REACTIONS (2)
  - Accident at work [Unknown]
  - Meniscus injury [Unknown]
